FAERS Safety Report 10386243 (Version 2)
Quarter: 2014Q3

REPORT INFORMATION
  Report Type: Report from Study
  Country: AR (occurrence: AR)
  Receive Date: 20140815
  Receipt Date: 20140901
  Transmission Date: 20150326
  Serious: Yes (Hospitalization)
  Sender: FDA-Public Use
  Company Number: PHHY2014AR101393

PATIENT
  Sex: Female

DRUGS (1)
  1. STALEVO [Suspect]
     Active Substance: CARBIDOPA\ENTACAPONE\LEVODOPA
     Indication: PARKINSON^S DISEASE
     Dosage: 100 MG, QID (FOUR PER DAY)
     Route: 048

REACTIONS (6)
  - Gait disturbance [Recovering/Resolving]
  - Nosocomial infection [Recovering/Resolving]
  - Road traffic accident [Recovering/Resolving]
  - Skin injury [Unknown]
  - Spinal column injury [Recovered/Resolved]
  - Coma [Recovering/Resolving]

NARRATIVE: CASE EVENT DATE: 2009
